FAERS Safety Report 25243361 (Version 1)
Quarter: 2025Q2

REPORT INFORMATION
  Report Type: Report from Study
  Country: CL (occurrence: CL)
  Receive Date: 20250428
  Receipt Date: 20250428
  Transmission Date: 20250716
  Serious: Yes (Other)
  Sender: NEXUS PHARMACEUTICALS
  Company Number: CL-Nexus Pharma-000384

PATIENT

DRUGS (1)
  1. COLISTIMETHATE SODIUM [Suspect]
     Active Substance: COLISTIMETHATE SODIUM
     Indication: Bacterial infection
     Route: 042

REACTIONS (2)
  - Pulmonary toxicity [Unknown]
  - Nephropathy toxic [Unknown]
